FAERS Safety Report 7292722-2 (Version None)
Quarter: 2011Q1

REPORT INFORMATION
  Report Type: 
  Country: None (occurrence: None)
  Receive Date: 20110215
  Receipt Date: 20110207
  Transmission Date: 20110831
  Serious: Yes (Other)
  Sender: FDA-Public Use
  Company Number: DE-GENZYME-CERZ-1001867

PATIENT

DRUGS (2)
  1. CEREZYME [Suspect]
     Indication: GAUCHER'S DISEASE
     Dosage: 60 U/KG, UNK
     Route: 042
     Dates: start: 19930101
  2. CEREZYME [Suspect]
     Dosage: 90 U/KG, UNK
     Route: 042

REACTIONS (2)
  - BLINDNESS UNILATERAL [None]
  - GENERAL PHYSICAL HEALTH DETERIORATION [None]
